FAERS Safety Report 6141704-2 (Version None)
Quarter: 2009Q1

REPORT INFORMATION
  Report Type: 
  Country: None (occurrence: None)
  Receive Date: 20090331
  Receipt Date: 20090331
  Transmission Date: 20090719
  Serious: Yes (Hospitalization)
  Sender: FDA-Public Use
  Company Number: None

PATIENT
  Sex: Female
  Weight: 72.1 kg

DRUGS (7)
  1. AVASTIN [Suspect]
     Indication: HEPATIC NEOPLASM MALIGNANT
     Dosage: 10 MG/KG
     Dates: start: 20090318, end: 20090318
  2. LASIX [Concomitant]
  3. HYDROXYZINE [Concomitant]
  4. NADOLOL [Concomitant]
  5. SPIRONOLACTONE [Concomitant]
  6. NORCO [Concomitant]
  7. LACTULOSE [Concomitant]

REACTIONS (4)
  - CONSTIPATION [None]
  - COUGH [None]
  - HEPATIC ENCEPHALOPATHY [None]
  - INFECTION [None]
